FAERS Safety Report 9016137 (Version 1)
Quarter: 2013Q1

REPORT INFORMATION
  Report Type: Spontaneous
  Country: US (occurrence: US)
  Receive Date: 20130116
  Receipt Date: 20130116
  Transmission Date: 20140127
  Serious: Yes (Other)
  Sender: FDA-Public Use
  Company Number: US-009507513-0911USA00610

PATIENT
  Age: 66 Year
  Sex: Male
  Weight: 92.99 kg

DRUGS (11)
  1. SINGULAIR [Suspect]
     Indication: ASTHMA
     Dosage: 10 MG, HS
     Route: 048
     Dates: start: 20090310, end: 20090311
  2. SINGULAIR [Suspect]
     Indication: SEASONAL ALLERGY
     Dosage: 10 MG, UNK
     Route: 048
     Dates: start: 20090313, end: 20090315
  3. SINGULAIR [Suspect]
     Indication: SLEEP DISORDER DUE TO A GENERAL MEDICAL CONDITION
  4. SINGULAIR [Suspect]
     Indication: INSOMNIA
  5. FLOVENT HFA [Concomitant]
     Indication: ASTHMA
     Dosage: 220 MICROGRAM, 2 PUFFS 2\DAY, BID FOR OVER ONE YEAR
     Dates: start: 2008
  6. ASPIRIN [Concomitant]
     Dosage: 81 MG, QD FOR OVER 5 YEARS
     Dates: start: 2004
  7. SIMVASTATIN TABLETS, USP [Concomitant]
     Dosage: 20 MG, QD FOR OVR 10 YEARS
     Route: 048
     Dates: start: 1999
  8. ATENOLOL [Concomitant]
     Dosage: 100 MG, QD FOR OVER 10 YEARS
     Dates: start: 1999
  9. CLONAZEPAM [Concomitant]
     Dosage: 0.5 MG, QD FOR OVER 10 YEARS
     Dates: start: 1999
  10. SINEMET [Concomitant]
     Dosage: 25 MG-100 MG DAILY FOR OVER 10 YEARS
     Route: 048
     Dates: start: 1999
  11. NEXIUM [Concomitant]
     Dosage: 40 MG, QD FOR ABOUT 3 MONTHS
     Dates: start: 200812

REACTIONS (13)
  - Abnormal dreams [Recovered/Resolved]
  - Anger [Recovered/Resolved]
  - Fear [Recovered/Resolved]
  - Insomnia [Recovered/Resolved]
  - Joint swelling [Recovered/Resolved]
  - Nervousness [Recovered/Resolved]
  - Nightmare [Recovered/Resolved]
  - Local swelling [Recovered/Resolved]
  - Restlessness [Recovered/Resolved]
  - Speech disorder [Recovered/Resolved]
  - Stress [Recovered/Resolved]
  - Tremor [Recovered/Resolved]
  - Verbal abuse [Recovered/Resolved]
